FAERS Safety Report 6416551-4 (Version None)
Quarter: 2009Q4

REPORT INFORMATION
  Report Type: 
  Country: None (occurrence: None)
  Receive Date: 20091027
  Receipt Date: 20091016
  Transmission Date: 20100525
  Serious: Yes (Hospitalization)
  Sender: FDA-Public Use
  Company Number: US-JNJFOC-20090700549

PATIENT
  Sex: Female
  Weight: 64 kg

DRUGS (4)
  1. INFLIXIMAB [Suspect]
     Indication: IRRITABLE BOWEL SYNDROME
     Route: 042
  2. AZATHIOPRINE [Suspect]
     Indication: DRUG USE FOR UNKNOWN INDICATION
  3. MESALAZINE (5-ASA) [Suspect]
     Indication: DRUG USE FOR UNKNOWN INDICATION
     Route: 048
  4. PREDNISONE [Suspect]
     Indication: DRUG USE FOR UNKNOWN INDICATION

REACTIONS (3)
  - HERPES VIRUS INFECTION [None]
  - LYMPHOPROLIFERATIVE DISORDER [None]
  - PULMONARY OEDEMA [None]
